FAERS Safety Report 4723426-5 (Version None)
Quarter: 2005Q3

REPORT INFORMATION
  Report Type: 
  Country: None (occurrence: None)
  Receive Date: 20050721
  Receipt Date: 20050721
  Transmission Date: 20060218
  Serious: No
  Sender: FDA-Public Use
  Company Number: None

PATIENT
  Sex: Male
  Weight: 72.1219 kg

DRUGS (2)
  1. LOVASTATIN [Suspect]
     Indication: HYPERLIPIDAEMIA
     Dosage: 40MG  QD ORAL
     Route: 048
     Dates: start: 20031020, end: 20040129
  2. LEXAPRO [Concomitant]

REACTIONS (1)
  - THROMBOCYTOPENIA [None]
